FAERS Safety Report 11224312 (Version 1)
Quarter: 2015Q2

REPORT INFORMATION
  Report Type: Spontaneous
  Country: US (occurrence: None)
  Receive Date: 20150626
  Receipt Date: 20150626
  Transmission Date: 20150821
  Serious: Yes (Hospitalization)
  Sender: FDA-Public Use
  Company Number: None

PATIENT
  Age: 65 Year
  Sex: Male
  Weight: 96.4 kg

DRUGS (2)
  1. VALSARTAN. [Suspect]
     Active Substance: VALSARTAN
     Indication: CARDIAC FAILURE CONGESTIVE
     Route: 048
     Dates: start: 20150617, end: 20150618
  2. VALSARTAN. [Suspect]
     Active Substance: VALSARTAN
     Indication: DIABETES MELLITUS
     Route: 048
     Dates: start: 20150617, end: 20150618

REACTIONS (3)
  - Rash [None]
  - Angioedema [None]
  - Rash maculo-papular [None]

NARRATIVE: CASE EVENT DATE: 20150618
